FAERS Safety Report 8456821-1 (Version None)
Quarter: 2012Q2

REPORT INFORMATION
  Report Type: 
  Country: None (occurrence: None)
  Receive Date: 20120621
  Receipt Date: 20120619
  Transmission Date: 20120825
  Serious: No
  Sender: FDA-Public Use
  Company Number: US-PFIZER INC-2012126419

PATIENT
  Sex: Female
  Weight: 82.54 kg

DRUGS (10)
  1. PREMARIN [Suspect]
     Indication: FUNGAL INFECTION
  2. CITALOPRAM [Concomitant]
     Indication: DEPRESSION
     Dosage: UNK
  3. CELEXA [Concomitant]
     Indication: DEPRESSION
     Dosage: UNK, DAILY
  4. OMEPRAZOLE [Concomitant]
     Indication: GASTROOESOPHAGEAL REFLUX DISEASE
     Dosage: UNK, DAILY
  5. PREMARIN [Suspect]
     Indication: ATROPHIC VULVOVAGINITIS
  6. AMLODIPINE [Concomitant]
  7. PREMARIN [Suspect]
     Indication: VULVOVAGINAL DRYNESS
     Dosage: UNK, 3 TIMES A WEEK
     Route: 067
     Dates: start: 20120201
  8. SIMVASTATIN [Concomitant]
     Indication: BLOOD CHOLESTEROL INCREASED
     Dosage: UNK, DAILY
  9. SIMVASTATIN [Concomitant]
     Indication: HYPERLIPIDAEMIA
  10. AMLODIPINE [Concomitant]
     Indication: HYPERTENSION
     Dosage: UNK, DAILY

REACTIONS (3)
  - CRYING [None]
  - MOOD ALTERED [None]
  - HEADACHE [None]
